FAERS Safety Report 4766757-5 (Version None)
Quarter: 2005Q3

REPORT INFORMATION
  Report Type: 
  Country: None (occurrence: None)
  Receive Date: 20050912
  Receipt Date: 20050603
  Transmission Date: 20060218
  Serious: Yes (Hospitalization, Disabling)
  Sender: FDA-Public Use
  Company Number: US-MERCK-0506USA00849

PATIENT
  Age: 49 Year
  Sex: Female
  Weight: 91 kg

DRUGS (5)
  1. NORVASC [Concomitant]
     Indication: HYPERTENSION
     Route: 065
     Dates: start: 20000101, end: 20030101
  2. LOTREL [Concomitant]
     Indication: HYPERTENSION
     Route: 065
     Dates: start: 20000101
  3. VIOXX [Suspect]
     Indication: ARTHRALGIA
     Route: 048
     Dates: start: 20010301, end: 20020601
  4. GLUCOTROL [Concomitant]
     Indication: DIABETES MELLITUS
     Route: 065
     Dates: start: 19850101
  5. GLUCOPHAGE [Concomitant]
     Indication: DIABETES MELLITUS
     Route: 065
     Dates: start: 19850101

REACTIONS (5)
  - ANGINA PECTORIS [None]
  - BLOOD CHOLESTEROL INCREASED [None]
  - CEREBROVASCULAR ACCIDENT [None]
  - CONVULSION [None]
  - CORONARY ARTERY DISEASE [None]
